FAERS Safety Report 18267425 (Version 1)
Quarter: 2020Q3

REPORT INFORMATION
  Report Type: Spontaneous
  Country: CA (occurrence: CA)
  Receive Date: 20200915
  Receipt Date: 20200915
  Transmission Date: 20201103
  Serious: Yes (Other)
  Sender: FDA-Public Use
  Company Number: CA-TEVA-2020-CA-1826908

PATIENT
  Age: 80 Year
  Sex: Male
  Weight: 66 kg

DRUGS (12)
  1. ELIQUIS [Concomitant]
     Active Substance: APIXABAN
  2. LORAZEPAM. [Concomitant]
     Active Substance: LORAZEPAM
  3. ATORVASTATIN [Concomitant]
     Active Substance: ATORVASTATIN
  4. SPIRIVA RESPIMAT [Concomitant]
     Active Substance: TIOTROPIUM BROMIDE
  5. TELMISARTAN. [Concomitant]
     Active Substance: TELMISARTAN
  6. JUBLIA [Concomitant]
     Active Substance: EFINACONAZOLE
  7. SYMBICORT [Concomitant]
     Active Substance: BUDESONIDE\FORMOTEROL FUMARATE DIHYDRATE
  8. VITAMIN D [Concomitant]
     Active Substance: VITAMIN D NOS
  9. DILTIAZEM. [Suspect]
     Active Substance: DILTIAZEM
     Indication: ATRIAL FIBRILLATION
     Route: 048
  10. DILTIAZEM HYDROCHLORIDE INJECTION [Suspect]
     Active Substance: DILTIAZEM HYDROCHLORIDE
     Indication: ATRIAL FIBRILLATION
     Route: 042
  11. DILTIAZEM CD [Concomitant]
     Active Substance: DILTIAZEM
  12. DILTIAZEM HYDROCHLORIDE INJECTION [Suspect]
     Active Substance: DILTIAZEM HYDROCHLORIDE
     Route: 042

REACTIONS (3)
  - Infusion site erythema [Recovered/Resolved]
  - Injection site pain [Recovered/Resolved]
  - Rash erythematous [Recovered/Resolved]
